FAERS Safety Report 22926394 (Version 2)
Quarter: 2023Q4

REPORT INFORMATION
  Report Type: Spontaneous
  Country: GB (occurrence: GB)
  Receive Date: 20230909
  Receipt Date: 20231020
  Transmission Date: 20240110
  Serious: Yes (Other)
  Sender: FDA-Public Use
  Company Number: GB-UCBSA-2023044172

PATIENT
  Sex: Female

DRUGS (5)
  1. BRIVIACT [Suspect]
     Active Substance: BRIVARACETAM
     Indication: Epilepsy
     Dosage: 100 MILLIGRAM, 2X/DAY (BID)
  2. BRIVIACT [Suspect]
     Active Substance: BRIVARACETAM
     Dosage: 75 MILLIGRAM, UNK
     Dates: start: 202307
  3. EPILEM [LEVETIRACETAM] [Concomitant]
     Indication: Product used for unknown indication
     Dosage: 400 MILLIGRAM, 2X/DAY (BID)
  4. NAPROXEN [Concomitant]
     Active Substance: NAPROXEN
     Indication: Product used for unknown indication
     Dosage: 500 MILLIGRAM, 2X/DAY (BID)
  5. LANSOPRAZOLE [Concomitant]
     Active Substance: LANSOPRAZOLE
     Indication: Product used for unknown indication
     Dosage: 15 MILLIGRAM, 2X/DAY (BID)

REACTIONS (4)
  - Petit mal epilepsy [Unknown]
  - Seizure [Unknown]
  - Intentional product use issue [Unknown]
  - Product availability issue [Unknown]

NARRATIVE: CASE EVENT DATE: 20230701
